FAERS Safety Report 8327059-3 (Version None)
Quarter: 2012Q2

REPORT INFORMATION
  Report Type: 
  Country: None (occurrence: None)
  Receive Date: 20120501
  Receipt Date: 20111222
  Transmission Date: 20120825
  Serious: No
  Sender: FDA-Public Use
  Company Number: US-SANOFI-AVENTIS-2011SA084255

PATIENT
  Age: 25 Year
  Sex: Female
  Weight: 70 kg

DRUGS (2)
  1. APIDRA [Suspect]
     Indication: TYPE 1 DIABETES MELLITUS
     Dosage: TAKES BY PUMP.START DATE: 8 YEARS AGO
     Route: 058
     Dates: start: 20030101
  2. APIDRA [Suspect]
     Route: 058
     Dates: start: 20120110

REACTIONS (5)
  - PRODUCT QUALITY ISSUE [None]
  - GLYCOSYLATED HAEMOGLOBIN INCREASED [None]
  - MALAISE [None]
  - WEIGHT DECREASED [None]
  - HYPERGLYCAEMIA [None]
